FAERS Safety Report 8236493-1 (Version None)
Quarter: 2012Q1

REPORT INFORMATION
  Report Type: 
  Country: None (occurrence: None)
  Receive Date: 20120327
  Receipt Date: 20120319
  Transmission Date: 20120608
  Serious: Yes (Hospitalization, Other)
  Sender: FDA-Public Use
  Company Number: US-ASTELLAS-2012US002939

PATIENT

DRUGS (2)
  1. PROGRAF [Suspect]
     Indication: HEART TRANSPLANT
     Dosage: 3 MG, UID/QD
     Route: 065
  2. PROGRAF [Suspect]
     Dosage: 9 MG, UID/QD
     Route: 065
     Dates: start: 20100801

REACTIONS (9)
  - MEMORY IMPAIRMENT [None]
  - TREMOR [None]
  - PARAESTHESIA [None]
  - DEPRESSION [None]
  - HEART TRANSPLANT REJECTION [None]
  - DISTURBANCE IN ATTENTION [None]
  - DRUG INEFFECTIVE [None]
  - CONFUSIONAL STATE [None]
  - NERVOUSNESS [None]
